FAERS Safety Report 8758925 (Version 1)
Quarter: 2012Q4

REPORT INFORMATION
  Report Type: 
  Country: US (occurrence: US)
  Receive Date: 20120829
  Receipt Date: 20120829
  Transmission Date: 20130627
  Serious: Yes (Life-Threatening, Hospitalization, Other)
  Sender: FDA-Public Use
  Company Number: US-JNJFOC-20120812361

PATIENT
  Age: 5 None
  Sex: Male

DRUGS (3)
  1. INVEGA SUSTENNA [Suspect]
     Indication: SCHIZOPHRENIA
     Route: 030
     Dates: start: 20120714, end: 20120806
  2. INVEGA SUSTENNA [Suspect]
     Indication: SCHIZOPHRENIA
     Route: 030
     Dates: start: 201206
  3. CLOZAPINE [Suspect]
     Indication: SCHIZOPHRENIA
     Dosage: one time a day at bed time
     Route: 065
     Dates: start: 201206, end: 20120806

REACTIONS (1)
  - Neuroleptic malignant syndrome [Recovered/Resolved]
